FAERS Safety Report 7786361-4 (Version None)
Quarter: 2011Q3

REPORT INFORMATION
  Report Type: 
  Country: None (occurrence: None)
  Receive Date: 20110929
  Receipt Date: 20110922
  Transmission Date: 20111222
  Serious: Yes (Other)
  Sender: FDA-Public Use
  Company Number: US-JNJFOC-20110601829

PATIENT
  Sex: Male
  Weight: 83.92 kg

DRUGS (6)
  1. LEVAQUIN [Suspect]
     Indication: SINUSITIS
     Route: 048
  2. CIPROFLOXACIN [Suspect]
     Indication: SINUSITIS
     Route: 065
  3. METHYLPREDNISOLONE [Suspect]
     Indication: PRODUCT USED FOR UNKNOWN INDICATION
     Route: 065
  4. LIPITOR [Concomitant]
     Indication: BLOOD CHOLESTEROL
     Route: 065
  5. LEVITRA [Concomitant]
     Indication: ERECTILE DYSFUNCTION
     Route: 065
  6. BENICAR [Concomitant]
     Indication: HYPERTENSION
     Route: 065

REACTIONS (3)
  - TENDONITIS [None]
  - JOINT INJURY [None]
  - TENDON RUPTURE [None]
